FAERS Safety Report 5603293-8 (Version None)
Quarter: 2008Q1

REPORT INFORMATION
  Report Type: 
  Country: None (occurrence: None)
  Receive Date: 20080123
  Receipt Date: 20080116
  Transmission Date: 20080703
  Serious: Yes (Death, Hospitalization, Other)
  Sender: FDA-Public Use
  Company Number: 2007SP024729

PATIENT
  Age: 58 Year
  Sex: Female

DRUGS (9)
  1. TEMODAL [Suspect]
     Indication: METASTASES TO CENTRAL NERVOUS SYSTEM
     Dosage: 135 MG; QD; PO
     Route: 048
     Dates: start: 20071126, end: 20071217
  2. PANTOZOL [Concomitant]
  3. FORTECORTIN [Concomitant]
  4. CODEIN KNOLL [Concomitant]
  5. DAFALGAN [Concomitant]
  6. MORPHINE [Concomitant]
  7. TEMESTA [Concomitant]
  8. VALERIAN [Concomitant]
  9. NITROGLYCERIN [Concomitant]

REACTIONS (9)
  - BLOOD GLUCOSE INCREASED [None]
  - BLOOD LACTATE DEHYDROGENASE INCREASED [None]
  - BLOOD SODIUM DECREASED [None]
  - C-REACTIVE PROTEIN INCREASED [None]
  - GAMMA-GLUTAMYLTRANSFERASE INCREASED [None]
  - GENERAL PHYSICAL HEALTH DETERIORATION [None]
  - LYMPHOCYTE PERCENTAGE DECREASED [None]
  - ORAL CANDIDIASIS [None]
  - VOMITING [None]
